FAERS Safety Report 9823287 (Version 1)
Quarter: 2014Q1

REPORT INFORMATION
  Report Type: Spontaneous
  Country: US (occurrence: US)
  Receive Date: 20140116
  Receipt Date: 20140116
  Transmission Date: 20141002
  Serious: No
  Sender: FDA-Public Use
  Company Number: US-009507513-1401USA003256

PATIENT
  Age: 31 Year
  Sex: Female

DRUGS (4)
  1. ISENTRESS [Suspect]
     Dosage: TOTAL DAILY DOSE 800
     Route: 048
  2. EFAVIRENZ (+) EMTRICITABINE (+) TENOFOVIR DISOPROXIL FUMARATE [Suspect]
     Dosage: 1 DF, QD
     Route: 048
  3. RITONAVIR [Suspect]
     Dosage: TOTAL DAILY DOSE 100
     Route: 048
  4. EMTRICITABINE (+) TENOFOVIR DISOPROXIL FUMARATE [Suspect]
     Dosage: 1 DF, QD
     Route: 048

REACTIONS (1)
  - Exposure during pregnancy [Recovered/Resolved]
